FAERS Safety Report 21445414 (Version 8)
Quarter: 2023Q1

REPORT INFORMATION
  Report Type: Report from Study
  Country: US (occurrence: US)
  Receive Date: 20221012
  Receipt Date: 20230310
  Transmission Date: 20230418
  Serious: No
  Sender: FDA-Public Use
  Company Number: US-NOVARTISTESTPH-NVSC2022US229363

PATIENT
  Sex: Male
  Weight: 20.411 kg

DRUGS (4)
  1. TREPROSTINIL [Suspect]
     Active Substance: TREPROSTINIL
     Indication: Pulmonary arterial hypertension
     Dosage: UNK, CONT (60 NG/KG/MIN)
     Route: 058
     Dates: start: 20220921
  2. TREPROSTINIL [Suspect]
     Active Substance: TREPROSTINIL
     Dosage: UNK, CONT (60 NG/KG/MIN)
     Route: 058
  3. TADALAFIL [Concomitant]
     Active Substance: TADALAFIL
     Indication: Product used for unknown indication
     Dosage: 20 MG, QD
     Route: 048
  4. AMBRISENTAN [Concomitant]
     Active Substance: AMBRISENTAN
     Indication: Product used for unknown indication
     Dosage: 5 MG, QD
     Route: 048

REACTIONS (8)
  - Pain [Recovering/Resolving]
  - Infusion site haemorrhage [Recovering/Resolving]
  - Infusion site erythema [Recovering/Resolving]
  - Lymphadenopathy [Unknown]
  - Device breakage [Unknown]
  - Injection site pain [Unknown]
  - Pain in extremity [Unknown]
  - Food allergy [Unknown]
